FAERS Safety Report 8487835-3 (Version None)
Quarter: 2012Q3

REPORT INFORMATION
  Report Type: 
  Country: None (occurrence: None)
  Receive Date: 20120705
  Receipt Date: 20120626
  Transmission Date: 20120928
  Serious: Yes (Life-Threatening, Hospitalization, Other)
  Sender: FDA-Public Use
  Company Number: JP-PFIZER INC-2012038657

PATIENT
  Age: 59 Year
  Sex: Female
  Weight: 64.8 kg

DRUGS (4)
  1. AZULFIDINE [Suspect]
     Indication: RHEUMATOID ARTHRITIS
     Dosage: 500 MG/DAY
     Route: 048
     Dates: start: 20111001, end: 20111105
  2. CELEBREX [Suspect]
     Indication: RHEUMATOID ARTHRITIS
     Dosage: 200 MG, 2X/DAY
     Route: 048
     Dates: start: 20111001, end: 20111104
  3. PREDNISOLONE SODIUM SUCCINATE INJ [Concomitant]
     Dosage: 5 MG, 2X/DAY
     Route: 048
     Dates: start: 20111109
  4. PREDNISOLONE SODIUM SUCCINATE INJ [Concomitant]
     Indication: RHEUMATOID ARTHRITIS
     Dosage: 5 MG, 1X/DAY
     Route: 048
     Dates: start: 20111001, end: 20111108

REACTIONS (10)
  - ABSCESS LIMB [None]
  - ORAL CANDIDIASIS [None]
  - HERPES OESOPHAGITIS [None]
  - RED BLOOD CELL COUNT DECREASED [None]
  - ARTHRALGIA [None]
  - AGRANULOCYTOSIS [None]
  - HEPATIC FUNCTION ABNORMAL [None]
  - FEBRILE NEUTROPENIA [None]
  - DRUG ERUPTION [None]
  - OESOPHAGITIS ULCERATIVE [None]
